FAERS Safety Report 12644271 (Version 1)
Quarter: 2016Q3

REPORT INFORMATION
  Report Type: Spontaneous
  Country: CO (occurrence: CO)
  Receive Date: 20160811
  Receipt Date: 20160811
  Transmission Date: 20161109
  Serious: Yes (Death)
  Sender: FDA-Public Use
  Company Number: CO-NOVOPROD-504016

PATIENT
  Age: 30 Year
  Sex: Female
  Weight: 70 kg

DRUGS (3)
  1. NOVOSEVEN RT [Suspect]
     Active Substance: COAGULATION FACTOR VIIA RECOMBINANT HUMAN
     Indication: ABDOMINAL OPERATION
     Dosage: 49 MG
     Route: 065
     Dates: start: 20160729, end: 20160731
  2. NOVOSEVEN RT [Suspect]
     Active Substance: COAGULATION FACTOR VIIA RECOMBINANT HUMAN
     Indication: HAEMORRHAGE
     Dosage: 15 MG
     Route: 065
     Dates: start: 20160729, end: 20160729
  3. NOVOSEVEN RT [Suspect]
     Active Substance: COAGULATION FACTOR VIIA RECOMBINANT HUMAN
     Indication: CENTRAL NERVOUS SYSTEM HAEMORRHAGE

REACTIONS (2)
  - Off label use [Recovered/Resolved]
  - Death [Fatal]

NARRATIVE: CASE EVENT DATE: 20160729
